FAERS Safety Report 16430385 (Version 1)
Quarter: 2019Q2

REPORT INFORMATION
  Report Type: Spontaneous
  Country: US (occurrence: US)
  Receive Date: 20190614
  Receipt Date: 20190614
  Transmission Date: 20190711
  Serious: Yes (Hospitalization, Other)
  Sender: FDA-Public Use
  Company Number: US-AUROBINDO-AUR-APL-2019-034291

PATIENT

DRUGS (1)
  1. TRANEXAMIC ACID INJECTION [Suspect]
     Active Substance: TRANEXAMIC ACID
     Indication: PRODUCT USED FOR UNKNOWN INDICATION
     Dosage: UNK (1 G OR 100 MG/ML)

REACTIONS (5)
  - Product appearance confusion [Unknown]
  - Seizure [Unknown]
  - Myoclonus [Unknown]
  - Incorrect route of product administration [Unknown]
  - Wrong product administered [Unknown]
